FAERS Safety Report 7429157-5 (Version None)
Quarter: 2011Q2

REPORT INFORMATION
  Report Type: 
  Country: None (occurrence: None)
  Receive Date: 20110421
  Receipt Date: 20110413
  Transmission Date: 20111010
  Serious: Yes (Other)
  Sender: FDA-Public Use
  Company Number: GB-SANOFI-AVENTIS-2011SA022769

PATIENT
  Sex: Male

DRUGS (4)
  1. LANTUS [Suspect]
     Route: 058
  2. NOVORAPID [Concomitant]
  3. SIMVASTATIN [Concomitant]
  4. SOLOSTAR [Suspect]

REACTIONS (5)
  - ANXIETY [None]
  - HEART RATE INCREASED [None]
  - PANIC ATTACK [None]
  - AGGRESSION [None]
  - DISTURBANCE IN ATTENTION [None]
